FAERS Safety Report 13235483 (Version 1)
Quarter: 2017Q1

REPORT INFORMATION
  Report Type: Spontaneous
  Country: FR (occurrence: FR)
  Receive Date: 20170215
  Receipt Date: 20170215
  Transmission Date: 20170428
  Serious: Yes (Hospitalization)
  Sender: FDA-Public Use
  Company Number: FR-B.I. PHARMACEUTICALS,INC./RIDGEFIELD-2017-BI-008692

PATIENT
  Age: 84 Year
  Sex: Male

DRUGS (3)
  1. TAMSULOSINA [Suspect]
     Active Substance: TAMSULOSIN HYDROCHLORIDE
     Indication: BENIGN PROSTATIC HYPERPLASIA
     Route: 048
  2. TADENAN [Concomitant]
     Active Substance: PYGEUM
     Indication: PRODUCT USED FOR UNKNOWN INDICATION
     Route: 065
  3. MONOPROST [Concomitant]
     Active Substance: LATANOPROST
     Indication: GLAUCOMA
     Route: 065

REACTIONS (3)
  - Diplopia [Recovered/Resolved]
  - Treatment noncompliance [Recovered/Resolved]
  - Aphasia [Recovered/Resolved]

NARRATIVE: CASE EVENT DATE: 20170203
